FAERS Safety Report 7367101-X (Version None)
Quarter: 2011Q1

REPORT INFORMATION
  Report Type: 
  Country: None (occurrence: None)
  Receive Date: 20110310
  Receipt Date: 20110223
  Transmission Date: 20110831
  Serious: Yes (Life-Threatening, Hospitalization)
  Sender: FDA-Public Use
  Company Number: 2011MA001898

PATIENT
  Age: 76 Year
  Sex: Male

DRUGS (12)
  1. GLICLAZIDE [Concomitant]
  2. ACETYLSALICYLIC ACID [Concomitant]
  3. BISOPROLOL [Concomitant]
  4. IRINOTECAN HCL [Suspect]
     Indication: COLON CANCER STAGE IV
     Dosage: 620 MG;IV
     Route: 042
     Dates: start: 20110111, end: 20110111
  5. DEXAMETHASONE (DEXAMETHASONE) [Suspect]
     Indication: PROPHYLAXIS OF NAUSEA AND VOMITING
     Dosage: 8 MG;PO
     Route: 048
     Dates: start: 20110111, end: 20110113
  6. METFORMIN HCL [Concomitant]
  7. AMLODIPINE [Concomitant]
  8. ISOSORBIDE MONONITRATE [Concomitant]
  9. IRBESARTAN [Concomitant]
  10. ONDANSETRON [Suspect]
     Indication: PROPHYLAXIS OF NAUSEA AND VOMITING
     Dosage: 8 MG;IV
     Route: 042
     Dates: start: 20110111, end: 20110111
  11. PRAVASTATIN [Concomitant]
  12. FERROUS SULFATE TAB [Concomitant]

REACTIONS (2)
  - ACUTE MYOCARDIAL INFARCTION [None]
  - DIARRHOEA [None]
